FAERS Safety Report 8917652 (Version 1)
Quarter: 2012Q4

REPORT INFORMATION
  Report Type: 
  Country: FR (occurrence: FR)
  Receive Date: 20121119
  Receipt Date: 20121119
  Transmission Date: 20130627
  Serious: Yes (Death)
  Sender: FDA-Public Use
  Company Number: FR-009507513-1211FRA007359

PATIENT
  Age: 69 Year
  Sex: Male

DRUGS (13)
  1. TIENAM 500MG/500MG, POUDRE POUR PERFUSION [Suspect]
     Indication: COLECTOMY
     Dosage: 500 mg, Once
     Route: 042
     Dates: start: 20120828, end: 20120828
  2. VANCOMYCIN [Suspect]
     Indication: COLECTOMY
     Dosage: 2000 mg, Once
     Route: 042
     Dates: start: 20120828, end: 20120828
  3. AMIKACINE MYLAN [Suspect]
     Indication: COLECTOMY
     Dosage: 2500 mg, Once
     Route: 042
     Dates: start: 20120828, end: 20120828
  4. ZEFFIX [Concomitant]
  5. TENORMINE [Concomitant]
  6. IMOVANE [Concomitant]
  7. XATRAL [Concomitant]
  8. CYSTINE B6 [Concomitant]
  9. AMLOR [Concomitant]
     Dosage: UNK
  10. DEROXAT [Concomitant]
  11. CORTANCYL [Concomitant]
  12. CELLCEPT [Concomitant]
  13. INIPOMP [Concomitant]

REACTIONS (2)
  - Tachycardia [Fatal]
  - Circulatory collapse [Fatal]
